FAERS Safety Report 7036819-0 (Version None)
Quarter: 2010Q4

REPORT INFORMATION
  Report Type: 
  Country: None (occurrence: None)
  Receive Date: 20101011
  Receipt Date: 20101004
  Transmission Date: 20110411
  Serious: Yes (Life-Threatening, Hospitalization, Other)
  Sender: FDA-Public Use
  Company Number: US-ELI_LILLY_AND_COMPANY-US201007005268

PATIENT
  Sex: Female
  Weight: 93.878 kg

DRUGS (9)
  1. BYETTA [Suspect]
     Dosage: UNK, UNK
     Dates: start: 20070707, end: 20070720
  2. AVANDIA [Concomitant]
     Indication: TYPE 2 DIABETES MELLITUS
     Route: 048
  3. METFORMIN [Concomitant]
     Indication: TYPE 2 DIABETES MELLITUS
     Route: 048
  4. CRESTOR [Concomitant]
     Indication: BLOOD CHOLESTEROL INCREASED
  5. LEVOTHYROXINE [Concomitant]
     Indication: HYPERTHYROIDISM
  6. HYDROCHLOROTHIAZIDE [Concomitant]
     Indication: OEDEMA
  7. LISINOPRIL [Concomitant]
  8. GLUCOPHAGE [Concomitant]
  9. SYNTHROID [Concomitant]

REACTIONS (12)
  - BLINDNESS [None]
  - CONVULSION [None]
  - EYE INFLAMMATION [None]
  - LOSS OF CONSCIOUSNESS [None]
  - MULTI-ORGAN FAILURE [None]
  - MYOCARDIAL INFARCTION [None]
  - PANCREATITIS ACUTE [None]
  - PYREXIA [None]
  - RENAL FAILURE [None]
  - RESPIRATORY FAILURE [None]
  - SEPSIS [None]
  - SHOCK [None]
